FAERS Safety Report 14773634 (Version 1)
Quarter: 2018Q2

REPORT INFORMATION
  Report Type: Spontaneous
  Country: US (occurrence: US)
  Receive Date: 20180411
  Receipt Date: 20180411
  Transmission Date: 20180711
  Serious: Yes (Other)
  Sender: FDA-Public Use
  Company Number: None

PATIENT
  Age: 43 Year
  Sex: Female
  Weight: 68 kg

DRUGS (5)
  1. BEVESPI INHALER [Concomitant]
  2. ISAVUCONAZIUM [Suspect]
     Active Substance: ISAVUCONAZONIUM
     Indication: PULMONARY CAVITATION
     Route: 048
     Dates: start: 20170808, end: 20170922
  3. AMOXICILLIN/CLAVULANATE 875-125MG [Concomitant]
     Dates: start: 20170810, end: 20170816
  4. ALBUTEROL 90MCG/INH [Concomitant]
  5. ISAVUCONAZIUM [Suspect]
     Active Substance: ISAVUCONAZONIUM
     Indication: FUNGAL INFECTION
     Route: 048
     Dates: start: 20170808, end: 20170922

REACTIONS (3)
  - Agitation [None]
  - Anxiety [None]
  - Insomnia [None]

NARRATIVE: CASE EVENT DATE: 20170922
